FAERS Safety Report 18931116 (Version 1)
Quarter: 2021Q1

REPORT INFORMATION
  Report Type: Spontaneous
  Country: US (occurrence: US)
  Receive Date: 20210223
  Receipt Date: 20210223
  Transmission Date: 20210420
  Serious: Yes (Other)
  Sender: FDA-Public Use
  Company Number: US-SAGENT PHARMACEUTICALS-2021SAG000278

PATIENT

DRUGS (3)
  1. AMINOCAPROIC ACID. [Suspect]
     Active Substance: AMINOCAPROIC ACID
     Indication: PROCOAGULANT THERAPY
     Dosage: 4G LOADING DOSE
     Route: 065
  2. DESMOPRESSIN ACETATE. [Suspect]
     Active Substance: DESMOPRESSIN ACETATE
     Indication: PROCOAGULANT THERAPY
     Dosage: 15 ?G, UNK
     Route: 065
  3. AMINOCAPROIC ACID. [Suspect]
     Active Substance: AMINOCAPROIC ACID
     Dosage: 1G /H MAINTAING DOSE
     Route: 065

REACTIONS (3)
  - Cyanosis [Recovered/Resolved]
  - Petechiae [Recovered/Resolved]
  - Dyspnoea [Recovered/Resolved]
